FAERS Safety Report 5219417-0 (Version None)
Quarter: 2007Q1

REPORT INFORMATION
  Report Type: 
  Country: None (occurrence: None)
  Receive Date: 20061121
  Receipt Date: 20060907
  Transmission Date: 20070707
  Serious: No
  Sender: FDA-Public Use
  Company Number: TPA2006A01534

PATIENT
  Age: 80 Year
  Sex: Female
  Weight: 51.7101 kg

DRUGS (7)
  1. ROZEREM [Suspect]
     Indication: INSOMNIA
     Dosage: QHS, PER ORAL
     Route: 048
     Dates: start: 20060903
  2. SEROQUEL [Concomitant]
  3. CELEXA [Concomitant]
  4. NITROGLYCERIN [Concomitant]
  5. MORPHINE [Concomitant]
  6. UNKNOWN BLOOD PRESSURE MEDICATION (ANTIHYPERTENSIVES) [Concomitant]
  7. UNKNOWN REFLEX MEDICATION (ALL OTHER THERAPEUTIC PRODUCTS) [Concomitant]

REACTIONS (2)
  - ANOREXIA [None]
  - CONFUSIONAL STATE [None]
